FAERS Safety Report 19702258 (Version 1)
Quarter: 2021Q3

REPORT INFORMATION
  Report Type: Spontaneous
  Country: CN (occurrence: CN)
  Receive Date: 20210814
  Receipt Date: 20210814
  Transmission Date: 20211014
  Serious: Yes (Other)
  Sender: FDA-Public Use
  Company Number: CN-ROCHE-2886035

PATIENT
  Age: 57 Year
  Sex: Male

DRUGS (4)
  1. TECENTRIQ [Suspect]
     Active Substance: ATEZOLIZUMAB
     Indication: SMALL CELL LUNG CANCER METASTATIC
     Dosage: 25/JAN/2021, 24/FEB/2021 AND 25/MAR/2021
     Route: 065
     Dates: start: 20210101
  2. TECENTRIQ [Suspect]
     Active Substance: ATEZOLIZUMAB
     Dosage: 12/MAY/2021, 02/JUN/2021, AND 24/JUN/2021
     Route: 065
     Dates: start: 20210418
  3. ETOPOSIDE. [Concomitant]
     Active Substance: ETOPOSIDE
     Indication: SMALL CELL LUNG CANCER METASTATIC
     Dosage: ON 25/JAN/2021, 24/FEB/2021 AND 25/MAR/2021
     Dates: start: 20210101
  4. CARBOPLATIN. [Concomitant]
     Active Substance: CARBOPLATIN
     Indication: SMALL CELL LUNG CANCER METASTATIC
     Dosage: ON 25/JAN/2021, 24/FEB/2021 AND 25/MAR/2021
     Dates: start: 20210101

REACTIONS (3)
  - Asthenia [Unknown]
  - Myelosuppression [Unknown]
  - Gastrointestinal disorder [Unknown]
